FAERS Safety Report 8030687-6 (Version None)
Quarter: 2012Q1

REPORT INFORMATION
  Report Type: 
  Country: None (occurrence: None)
  Receive Date: 20120109
  Receipt Date: 20120106
  Transmission Date: 20120608
  Serious: No
  Sender: FDA-Public Use
  Company Number: US-JNJFOC-20120102146

PATIENT
  Sex: Female

DRUGS (2)
  1. FENTANYL [Suspect]
     Indication: PAIN IN EXTREMITY
     Route: 062
     Dates: start: 20111001, end: 20111113
  2. FENTANYL [Suspect]
     Indication: FIBROMYALGIA
     Route: 062
     Dates: start: 20111001, end: 20111113

REACTIONS (2)
  - TREATMENT NONCOMPLIANCE [None]
  - DRUG DOSE OMISSION [None]
